FAERS Safety Report 7388561-4 (Version None)
Quarter: 2011Q2

REPORT INFORMATION
  Report Type: 
  Country: None (occurrence: None)
  Receive Date: 20110401
  Receipt Date: 20110329
  Transmission Date: 20111010
  Serious: Yes (Death)
  Sender: FDA-Public Use
  Company Number: PHHY2011CO25923

PATIENT
  Sex: Male

DRUGS (1)
  1. SANDOSTATIN LAR [Suspect]
     Indication: NEUROENDOCRINE TUMOUR
     Dosage: 20 MG, EVERY 28 DAYS
     Route: 030
     Dates: start: 20110206

REACTIONS (4)
  - LIVER DISORDER [None]
  - MEDICAL DEVICE COMPLICATION [None]
  - BILE DUCT OBSTRUCTION [None]
  - FLUID RETENTION [None]
